FAERS Safety Report 17600565 (Version 8)
Quarter: 2020Q3

REPORT INFORMATION
  Report Type: Report from Study
  Country: DE (occurrence: DE)
  Receive Date: 20200330
  Receipt Date: 20200710
  Transmission Date: 20201102
  Serious: Yes (Hospitalization)
  Sender: FDA-Public Use
  Company Number: NVSC2020DE085022

PATIENT
  Age: 49 Year
  Sex: Female
  Weight: 72 kg

DRUGS (21)
  1. RIBOCICLIB. [Suspect]
     Active Substance: RIBOCICLIB
     Indication: NEOPLASM MALIGNANT
     Dosage: 200 MG, QD
     Route: 048
     Dates: start: 20200312, end: 20200324
  2. NOVALGIN [Concomitant]
     Indication: GENERAL PHYSICAL CONDITION
     Dosage: UNK
     Route: 065
     Dates: start: 20200312
  3. NOVALGIN [Concomitant]
     Indication: BACK PAIN
  4. TILIDIN [Concomitant]
     Active Substance: NALOXONE HYDROCHLORIDE\TILIDINE HYDROCHLORIDE
     Indication: BACK PAIN
  5. L?THYROXIN [Concomitant]
     Active Substance: LEVOTHYROXINE SODIUM
     Indication: HYPOTHYROIDISM
  6. TILIDIN [Concomitant]
     Active Substance: NALOXONE HYDROCHLORIDE\TILIDINE HYDROCHLORIDE
     Indication: GENERAL PHYSICAL CONDITION
     Dosage: UNK
     Route: 065
     Dates: start: 20200201
  7. ZOPICLON [Concomitant]
     Active Substance: ZOPICLONE
     Indication: GENERAL PHYSICAL CONDITION
     Dosage: UNK
     Route: 065
     Dates: start: 20170101
  8. VOMEX A [Concomitant]
     Active Substance: DIMENHYDRINATE
     Indication: GENERAL PHYSICAL CONDITION
     Dosage: UNK
     Route: 065
     Dates: start: 20200312
  9. FOSTER [Concomitant]
     Active Substance: BECLOMETHASONE\FORMOTEROL
     Indication: COUGH
  10. PREGABALIN. [Concomitant]
     Active Substance: PREGABALIN
     Indication: GENERAL PHYSICAL CONDITION
     Dosage: UNK
     Route: 065
     Dates: start: 20191001, end: 20200312
  11. NEBIVOLOL. [Concomitant]
     Active Substance: NEBIVOLOL
     Indication: GENERAL PHYSICAL CONDITION
     Dosage: UNK
     Route: 065
     Dates: start: 20150101
  12. PANTOPRAZOL [Concomitant]
     Active Substance: PANTOPRAZOLE SODIUM
     Indication: PROPHYLAXIS
     Dosage: UNK
     Route: 065
     Dates: start: 20150601
  13. PREGABALIN. [Concomitant]
     Active Substance: PREGABALIN
     Indication: PERIPHERAL SENSORY NEUROPATHY
  14. ZOPICLON [Concomitant]
     Active Substance: ZOPICLONE
     Indication: INSOMNIA
  15. IBUPROFEN. [Concomitant]
     Active Substance: IBUPROFEN
     Indication: BACK PAIN
  16. TNO155 [Suspect]
     Active Substance: TNO-155 MONOSUCCINATE HEMIHYDRATE
     Indication: NEOPLASM MALIGNANT
     Dosage: 40 MG, QD
     Route: 048
     Dates: start: 20200312, end: 20200324
  17. NEBIVOLOL. [Concomitant]
     Active Substance: NEBIVOLOL
     Indication: TACHYCARDIA
  18. IBUPROFEN. [Concomitant]
     Active Substance: IBUPROFEN
     Indication: GENERAL PHYSICAL CONDITION
     Dosage: UNK
     Route: 065
     Dates: start: 20200201
  19. VOMEX A [Concomitant]
     Active Substance: DIMENHYDRINATE
     Indication: PROPHYLAXIS OF NAUSEA AND VOMITING
  20. FOSTER [Concomitant]
     Active Substance: BECLOMETHASONE\FORMOTEROL
     Indication: GENERAL PHYSICAL CONDITION
     Dosage: UNK
     Route: 065
     Dates: start: 20200201
  21. L?THYROXIN [Concomitant]
     Active Substance: LEVOTHYROXINE SODIUM
     Indication: GENERAL PHYSICAL CONDITION
     Dosage: UNK
     Route: 065
     Dates: start: 20181101

REACTIONS (5)
  - Dyspnoea [Recovering/Resolving]
  - Pneumonitis [Recovered/Resolved with Sequelae]
  - Pneumothorax [Recovered/Resolved]
  - Pleural effusion [Recovered/Resolved]
  - Dyspnoea [Recovered/Resolved with Sequelae]

NARRATIVE: CASE EVENT DATE: 20200324
